FAERS Safety Report 6860584-0 (Version None)
Quarter: 2010Q3

REPORT INFORMATION
  Report Type: 
  Country: None (occurrence: None)
  Receive Date: 20100720
  Receipt Date: 20100712
  Transmission Date: 20110219
  Serious: Yes (Life-Threatening)
  Sender: FDA-Public Use
  Company Number: D0068288A

PATIENT
  Age: 53 Year
  Sex: Female

DRUGS (2)
  1. ACYCLOVIR [Suspect]
     Indication: HERPES ZOSTER OTICUS
     Route: 065
  2. DICLOFENAC [Suspect]
     Route: 065

REACTIONS (1)
  - RENAL FAILURE [None]
